FAERS Safety Report 4393844-6 (Version None)
Quarter: 2004Q3

REPORT INFORMATION
  Report Type: 
  Country: None (occurrence: None)
  Receive Date: 20040701
  Receipt Date: 20040618
  Transmission Date: 20050211
  Serious: Yes (Hospitalization)
  Sender: FDA-Public Use
  Company Number: US-JNJFOC-20040302147

PATIENT
  Age: 80 Year
  Sex: Female
  Weight: 60.782 kg

DRUGS (11)
  1. REMICADE [Suspect]
     Indication: RHEUMATOID ARTHRITIS
     Dosage: 200 MG, 1 IN 8 WEEK, INTRAVENOUS
     Route: 042
     Dates: start: 20000801, end: 20020205
  2. REMICADE [Suspect]
     Indication: RHEUMATOID ARTHRITIS
     Dosage: 200 MG, 1 IN 8 WEEK, INTRAVENOUS
     Route: 042
     Dates: start: 20040402
  3. TYLENOL [Concomitant]
  4. FOLIC ACID [Concomitant]
  5. TANINOL (ALL OTHER THERAPEUTIC PRODUCTS) [Concomitant]
  6. METHOTREXATE [Concomitant]
  7. VIOXX [Concomitant]
  8. ACCUPRIL [Concomitant]
  9. PEPCID AC [Concomitant]
  10. LOTREL (LOTREL) [Concomitant]
  11. TENORMIN [Concomitant]

REACTIONS (11)
  - ABDOMINAL PAIN [None]
  - BAND NEUTROPHIL COUNT INCREASED [None]
  - DILATATION VENTRICULAR [None]
  - HAEMOGLOBIN DECREASED [None]
  - NAUSEA [None]
  - PECTUS EXCAVATUM [None]
  - PYREXIA [None]
  - RED BLOOD CELLS URINE POSITIVE [None]
  - REFUSAL OF TREATMENT BY PATIENT [None]
  - VOMITING [None]
  - WHITE BLOOD CELL COUNT INCREASED [None]
